FAERS Safety Report 7531419-8 (Version None)
Quarter: 2011Q2

REPORT INFORMATION
  Report Type: 
  Country: None (occurrence: None)
  Receive Date: 20110608
  Receipt Date: 20110601
  Transmission Date: 20111010
  Serious: Yes (Other)
  Sender: FDA-Public Use
  Company Number: NL-GENZYME-CAMP-1001663

PATIENT

DRUGS (3)
  1. CAMPATH [Suspect]
     Indication: MYCOSIS FUNGOIDES
     Dosage: 10 MG QW, 3 INJECTIONS
     Route: 058
  2. CORTICOSTEROIDS FOR SYSTEMIC USE [Concomitant]
     Indication: PRURITUS
     Dosage: CONTINUOUS TREATMENT, TAPERED
  3. CAMPATH [Suspect]
     Dosage: 1 INJECTION
     Route: 058

REACTIONS (2)
  - PRURITUS [None]
  - T-CELL LYMPHOMA RECURRENT [None]
